FAERS Safety Report 5075225-5 (Version None)
Quarter: 2006Q3

REPORT INFORMATION
  Report Type: 
  Country: None (occurrence: None)
  Receive Date: 20060807
  Receipt Date: 20060807
  Transmission Date: 20061208
  Serious: Yes (Other)
  Sender: FDA-Public Use
  Company Number: None

PATIENT
  Sex: Female
  Weight: 72.5755 kg

DRUGS (9)
  1. CATAPRES-TTS-1 [Suspect]
     Indication: HYPERTENSION
     Dosage: ONE PATCH TOPICAL EVERY DAY
     Route: 061
     Dates: start: 20060605, end: 20060713
  2. BENICAR HCT [Concomitant]
  3. VERAPAMIL ER [Concomitant]
  4. CALCIUM GLUCONATE [Concomitant]
  5. ASPIRIN [Concomitant]
  6. FUROSEMIDE [Concomitant]
  7. POTASSIUM [Concomitant]
  8. FLUOXETINE [Concomitant]
  9. WARFARIN SODIUM [Concomitant]

REACTIONS (5)
  - GAIT DISTURBANCE [None]
  - ILL-DEFINED DISORDER [None]
  - MEMORY IMPAIRMENT [None]
  - SLEEP DISORDER [None]
  - VISUAL DISTURBANCE [None]
